FAERS Safety Report 24829583 (Version 3)
Quarter: 2025Q3

REPORT INFORMATION
  Report Type: Spontaneous
  Country: US (occurrence: US)
  Receive Date: 20250110
  Receipt Date: 20250711
  Transmission Date: 20251020
  Serious: Yes (Hospitalization)
  Sender: REGENERON
  Company Number: US-REGENERON PHARMACEUTICALS, INC.-2025-013252

PATIENT
  Sex: Male

DRUGS (3)
  1. EVKEEZA [Suspect]
     Active Substance: EVINACUMAB-DGNB
     Indication: Product used for unknown indication
     Dosage: 15 MG/KG, Q4W (EVERY 4 WEEKS)
     Route: 042
  2. EZETIMIBE [Concomitant]
     Active Substance: EZETIMIBE
     Indication: Product used for unknown indication
     Dosage: 10 MG, QD (ONCE A DAY)
  3. LOMITAPIDE [Concomitant]
     Active Substance: LOMITAPIDE
     Indication: Product used for unknown indication
     Dosage: 20 MG, QD (ONCE DAY AT HS)

REACTIONS (3)
  - Tendonitis [Recovered/Resolved]
  - Pain [Unknown]
  - Gait inability [Recovered/Resolved]

NARRATIVE: CASE EVENT DATE: 20250102
